FAERS Safety Report 12614037 (Version 2)
Quarter: 2022Q1

REPORT INFORMATION
  Report Type: Spontaneous
  Country: US (occurrence: US)
  Receive Date: 20160802
  Receipt Date: 20220309
  Transmission Date: 20220424
  Serious: No
  Sender: FDA-Public Use
  Company Number: US-PFIZER INC-2016365525

PATIENT
  Age: 61 Year
  Sex: Female

DRUGS (1)
  1. XELJANZ [Suspect]
     Active Substance: TOFACITINIB CITRATE
     Dosage: 5 MG, UNK (6 WEEKS INTO TAKING XELJANZ)

REACTIONS (4)
  - Fatigue [Unknown]
  - Somnolence [Unknown]
  - Cystitis [Unknown]
  - Condition aggravated [Unknown]
